FAERS Safety Report 13645827 (Version 2)
Quarter: 2017Q3

REPORT INFORMATION
  Report Type: Spontaneous
  Country: US (occurrence: US)
  Receive Date: 20170613
  Receipt Date: 20170720
  Transmission Date: 20171127
  Serious: Yes (Hospitalization, Other)
  Sender: FDA-Public Use
  Company Number: US-ROCHE-1945466

PATIENT
  Age: 76 Year
  Sex: Male
  Weight: 65.83 kg

DRUGS (2)
  1. PREDNISONE. [Suspect]
     Active Substance: PREDNISONE
     Indication: PRODUCT USED FOR UNKNOWN INDICATION
     Route: 065
     Dates: start: 2014
  2. XOLAIR [Suspect]
     Active Substance: OMALIZUMAB
     Indication: ASTHMA
     Route: 058
     Dates: start: 20140205

REACTIONS (3)
  - Pneumonia [Recovered/Resolved]
  - Drug ineffective [Unknown]
  - Spirometry abnormal [Unknown]

NARRATIVE: CASE EVENT DATE: 201703
